FAERS Safety Report 6199738-8 (Version None)
Quarter: 2009Q2

REPORT INFORMATION
  Report Type: 
  Country: None (occurrence: None)
  Receive Date: 20090520
  Receipt Date: 20090520
  Transmission Date: 20091009
  Serious: No
  Sender: FDA-Public Use
  Company Number: None

PATIENT
  Sex: Female
  Weight: 52.6173 kg

DRUGS (1)
  1. MICARDIA (TELMISARTAN) 40 MG, BOEHRINGER INGELHEIM [Suspect]
     Indication: HYPERTENSION
     Dosage: 40 MG ONCE DAILY ORAL
     Route: 048
     Dates: start: 20090417, end: 20090426

REACTIONS (3)
  - BLOOD PRESSURE INCREASED [None]
  - DRUG INEFFECTIVE [None]
  - HEART RATE DECREASED [None]
